FAERS Safety Report 16235930 (Version 3)
Quarter: 2019Q2

REPORT INFORMATION
  Report Type: Report from Study
  Country: None (occurrence: AU)
  Receive Date: 20190425
  Receipt Date: 20190506
  Transmission Date: 20190711
  Serious: Yes (Death, Hospitalization)
  Sender: FDA-Public Use
  Company Number: AU-ABBVIE-19S-008-2755362-00

PATIENT
  Sex: Female

DRUGS (1)
  1. DUODOPA [Suspect]
     Active Substance: CARBIDOPA\LEVODOPA
     Indication: PARKINSON^S DISEASE
     Dosage: 100 ML GEL CASSETTE. FREQUENCY: 16 HOURS INFUSION
     Route: 050
     Dates: start: 20180725, end: 20190429

REACTIONS (2)
  - Dysphagia [Unknown]
  - Cardiac disorder [Fatal]
